FAERS Safety Report 18645057 (Version 3)
Quarter: 2021Q1

REPORT INFORMATION
  Report Type: Spontaneous
  Country: IE (occurrence: IE)
  Receive Date: 20201221
  Receipt Date: 20210120
  Transmission Date: 20210419
  Serious: Yes (Hospitalization, Other)
  Sender: FDA-Public Use
  Company Number: IE-MYLANLABS-2020M1104583

PATIENT
  Age: 50 Year
  Sex: Male

DRUGS (5)
  1. CHLORPROMAZINE. [Concomitant]
     Active Substance: CHLORPROMAZINE
     Dosage: UNK
     Route: 048
  2. CLOZARIL [Suspect]
     Active Substance: CLOZAPINE
     Dosage: BID, 300MG MORNING AND 300MG NIGHT
  3. LAMOTRIGINE. [Concomitant]
     Active Substance: LAMOTRIGINE
     Dosage: UNK
     Route: 048
  4. CLOZARIL [Suspect]
     Active Substance: CLOZAPINE
     Indication: SCHIZOPHRENIA
     Dosage: 600 MILLIGRAM, QD (300 MG BD)
     Route: 048
     Dates: start: 20070426
  5. CLOZARIL [Suspect]
     Active Substance: CLOZAPINE
     Dosage: BID, 200MG MORNING AND 250MG AT NIGHT

REACTIONS (4)
  - Schizophrenia [Recovering/Resolving]
  - White blood cell count decreased [Recovered/Resolved]
  - Thrombocytopenia [Recovered/Resolved]
  - Therapy cessation [Recovered/Resolved with Sequelae]

NARRATIVE: CASE EVENT DATE: 20210104
